FAERS Safety Report 9278304 (Version 1)
Quarter: 2013Q2

REPORT INFORMATION
  Report Type: Spontaneous
  Country: US (occurrence: None)
  Receive Date: 20130506
  Receipt Date: 20130506
  Transmission Date: 20140414
  Serious: Yes (Life-Threatening, Hospitalization)
  Sender: FDA-Public Use
  Company Number: None

PATIENT
  Age: 20 Year
  Sex: Female
  Weight: 56.7 kg

DRUGS (1)
  1. LORYNA [Suspect]
     Indication: OVARIAN CYST
     Dosage: 1 TABLET DAILEY PO
     Route: 048

REACTIONS (3)
  - Pulmonary embolism [None]
  - Pneumonia [None]
  - Lung disorder [None]
